FAERS Safety Report 25498834 (Version 1)
Quarter: 2025Q3

REPORT INFORMATION
  Report Type: Spontaneous
  Country: US (occurrence: None)
  Receive Date: 20250701
  Receipt Date: 20250701
  Transmission Date: 20251021
  Serious: Yes (Hospitalization)
  Sender: FDA-CTU
  Company Number: None

PATIENT
  Age: 57 Year
  Sex: Female
  Weight: 36.69 kg

DRUGS (8)
  1. CYCLOPHOSPHAMIDE [Suspect]
     Active Substance: CYCLOPHOSPHAMIDE
     Dates: end: 20250413
  2. CYTARABINE [Suspect]
     Active Substance: CYTARABINE
     Dates: end: 20250411
  3. DEXAMETHASONE [Suspect]
     Active Substance: DEXAMETHASONE
     Dates: end: 20250414
  4. DOXORUBICIN HYDROCHLORIDE [Suspect]
     Active Substance: DOXORUBICIN HYDROCHLORIDE
  5. METHOTREXATE [Suspect]
     Active Substance: METHOTREXATE
     Dates: end: 20250418
  6. PONATINIB [Suspect]
     Active Substance: PONATINIB
     Dates: end: 20250430
  7. PREDNISONE [Suspect]
     Active Substance: PREDNISONE
     Dates: end: 20250410
  8. VINCRISTINE SULFATE [Suspect]
     Active Substance: VINCRISTINE SULFATE
     Dates: end: 20250418

REACTIONS (1)
  - Blood creatinine increased [None]

NARRATIVE: CASE EVENT DATE: 20250422
